FAERS Safety Report 5407205-1 (Version None)
Quarter: 2007Q3

REPORT INFORMATION
  Report Type: 
  Country: None (occurrence: None)
  Receive Date: 20070807
  Receipt Date: 20070731
  Transmission Date: 20080115
  Serious: Yes (Other)
  Sender: FDA-Public Use
  Company Number: A0667322A

PATIENT
  Age: 45 Year
  Sex: Female

DRUGS (11)
  1. TYKERB [Suspect]
     Indication: BREAST CANCER
     Dosage: 5TAB PER DAY
     Route: 048
     Dates: start: 20070716
  2. TYLENOL (CAPLET) [Concomitant]
  3. BENADRYL [Concomitant]
  4. ZOMETA [Concomitant]
  5. XELODA [Concomitant]
  6. COUMADIN [Concomitant]
  7. POTASSIUM CHLORIDE [Concomitant]
  8. MAGNESIUM SULFATE [Concomitant]
  9. CALCIUM CHLORIDE [Concomitant]
  10. ZOFRAN [Concomitant]
  11. LEXAPRO [Concomitant]

REACTIONS (1)
  - BLISTER [None]
